FAERS Safety Report 9136461 (Version 1)
Quarter: 2013Q1

REPORT INFORMATION
  Report Type: Spontaneous
  Country: US (occurrence: US)
  Receive Date: 20130219
  Receipt Date: 20130219
  Transmission Date: 20140127
  Serious: No
  Sender: FDA-Public Use
  Company Number: US-BRISTOL-MYERS SQUIBB COMPANY-16839532

PATIENT
  Age: 66 Year
  Sex: Male

DRUGS (4)
  1. ABATACEPT SUBQ INJECTION 125MG/ML [Suspect]
     Dosage: ALSO TAKEN IN IV 125 MG WEEKLY 3 MONTH AGO.?LAST DOSE:04AUG2012
     Route: 058
     Dates: start: 201206, end: 20120912
  2. METHOTREXATE [Concomitant]
  3. PREDNISONE [Concomitant]
  4. MOTRIN [Concomitant]

REACTIONS (3)
  - Pain [Unknown]
  - Drug ineffective [Unknown]
  - Arthralgia [Unknown]
